FAERS Safety Report 25989912 (Version 1)
Quarter: 2025Q4

REPORT INFORMATION
  Report Type: Spontaneous
  Country: US (occurrence: None)
  Receive Date: 20251031
  Receipt Date: 20251031
  Transmission Date: 20260119
  Serious: Yes (Death)
  Sender: FDA-CTU
  Company Number: None

PATIENT
  Age: 70 Year
  Sex: Male

DRUGS (12)
  1. OFEV [Suspect]
     Active Substance: NINTEDANIB
     Indication: Interstitial lung disease
     Dosage: FREQUENCY : TWICE A DAY;?
     Route: 048
     Dates: start: 20201104, end: 20250727
  2. PANTOPRAZOLE [Concomitant]
     Active Substance: PANTOPRAZOLE
  3. CODEINE-GUAIFENESIN [Concomitant]
     Active Substance: CODEINE PHOSPHATE\GUAIFENESIN
  4. LOSARTAN [Concomitant]
     Active Substance: LOSARTAN
  5. FINERENONE [Concomitant]
     Active Substance: FINERENONE
  6. CALCITRIOL [Concomitant]
     Active Substance: CALCITRIOL
  7. EZETIMIBE [Concomitant]
     Active Substance: EZETIMIBE
  8. URSODIOL [Concomitant]
     Active Substance: URSODIOL
  9. Amlidipine [Concomitant]
  10. EMPAGLIFLOZIN [Concomitant]
     Active Substance: EMPAGLIFLOZIN
  11. RIVAROXABAN [Concomitant]
     Active Substance: RIVAROXABAN
  12. TAMSULOSIN [Concomitant]
     Active Substance: TAMSULOSIN

REACTIONS (1)
  - Death [None]

NARRATIVE: CASE EVENT DATE: 20250727
